FAERS Safety Report 9859919 (Version 3)
Quarter: 2018Q3

REPORT INFORMATION
  Report Type: Spontaneous
  Country: DE (occurrence: DE)
  Receive Date: 20140131
  Receipt Date: 20180801
  Transmission Date: 20181010
  Serious: Yes (Life-Threatening, Hospitalization, Other)
  Sender: FDA-Public Use
  Company Number: DE-PFIZER INC-2014026350

PATIENT
  Age: 81 Year
  Sex: Male
  Weight: 94 kg

DRUGS (25)
  1. TOREM [Suspect]
     Active Substance: TORSEMIDE
     Indication: HYPERTENSION
     Dosage: 10 MG, 1X/DAY
     Route: 048
     Dates: end: 20140120
  2. FOLSAN [Concomitant]
     Active Substance: FOLIC ACID
     Indication: FOLATE DEFICIENCY
     Dosage: 5 MG, UNK
  3. ASPIRIN. [Concomitant]
     Active Substance: ASPIRIN
     Indication: CORONARY ARTERY DISEASE
     Dosage: 100 MG, UNK
  4. SITAGLIPTIN PHOSPHATE [Concomitant]
     Active Substance: SITAGLIPTIN PHOSPHATE
     Dosage: UNK
  5. TOREM [Suspect]
     Active Substance: TORSEMIDE
     Dosage: 50 MG, DAILY
     Route: 048
  6. SIMVASTATIN. [Concomitant]
     Active Substance: SIMVASTATIN
     Indication: HYPERCHOLESTEROLAEMIA
     Dosage: 10 MG, UNK
  7. CLOPIDOGREL [Concomitant]
     Active Substance: CLOPIDOGREL BISULFATE
     Dosage: UNK
  8. NOVALGIN (METAMIZOLE SODIUM) [Concomitant]
     Active Substance: METAMIZOLE SODIUM
     Indication: PAIN
     Dosage: UNK
  9. HCT [Concomitant]
     Active Substance: HYDROCHLOROTHIAZIDE
     Dosage: UNK
  10. METFORMIN HCL [Suspect]
     Active Substance: METFORMIN HYDROCHLORIDE
     Indication: TYPE 2 DIABETES MELLITUS
     Dosage: 2000 MG, DAILY
     Route: 048
     Dates: end: 20140120
  11. RAMIPRIL. [Suspect]
     Active Substance: RAMIPRIL
     Indication: HYPERTENSION
     Dosage: 5 MG, 2X/DAY
     Route: 048
     Dates: end: 20140120
  12. DUTASTERIDE. [Concomitant]
     Active Substance: DUTASTERIDE
     Dosage: UNK
  13. PREDNISOLONE. [Concomitant]
     Active Substance: PREDNISOLONE
     Dosage: UNK
  14. HCT [Concomitant]
     Active Substance: HYDROCHLOROTHIAZIDE
     Indication: HYPERTENSION
     Dosage: 25 MG, UNK
     Dates: start: 20140120, end: 20140120
  15. PROSTAGUTT FORTE [Concomitant]
     Active Substance: HERBALS
     Indication: BENIGN PROSTATIC HYPERPLASIA
     Dosage: UNK, 1X/DAY
     Dates: start: 20140120, end: 20140120
  16. RANOLAZINE. [Concomitant]
     Active Substance: RANOLAZINE
     Dosage: UNK
  17. PREGABALIN. [Concomitant]
     Active Substance: PREGABALIN
     Dosage: UNK
  18. XELEVIA [Suspect]
     Active Substance: SITAGLIPTIN PHOSPHATE
     Indication: TYPE 2 DIABETES MELLITUS
     Dosage: 100 MG, 1X/DAY
     Route: 048
     Dates: end: 20140120
  19. METOHEXAL [Concomitant]
     Active Substance: METOPROLOL SUCCINATE
     Indication: TACHYCARDIA
     Dosage: 23.75 MG, 2X/DAY
  20. MOLSIDOMINE [Concomitant]
     Active Substance: MOLSIDOMINE
     Dosage: UNK
  21. PRAMIPEXOLE. [Concomitant]
     Active Substance: PRAMIPEXOLE
     Dosage: UNK
  22. KALIUM [Concomitant]
     Active Substance: POTASSIUM CHLORIDE
     Indication: HYPOKALAEMIA
     Dosage: 1 DOSE /3X/WEEK
     Dates: end: 20140120
  23. NOVALGIN (METAMIZOLE SODIUM) [Concomitant]
     Active Substance: METAMIZOLE SODIUM
     Indication: PAIN
     Dosage: AS NEEDED
  24. RIVAROXABAN [Concomitant]
     Active Substance: RIVAROXABAN
     Dosage: UNK
  25. AMLODIPINE [Concomitant]
     Active Substance: AMLODIPINE BESYLATE
     Dosage: UNK

REACTIONS (8)
  - Dizziness [Unknown]
  - Acute kidney injury [Not Recovered/Not Resolved]
  - Fatigue [Unknown]
  - General physical health deterioration [Unknown]
  - Dyspnoea [Unknown]
  - Lactic acidosis [Not Recovered/Not Resolved]
  - Hypoglycaemia [Not Recovered/Not Resolved]
  - Acute kidney injury [Unknown]

NARRATIVE: CASE EVENT DATE: 20140120
